FAERS Safety Report 6599680-4 (Version None)
Quarter: 2010Q1

REPORT INFORMATION
  Report Type: 
  Country: None (occurrence: None)
  Receive Date: 20100224
  Receipt Date: 20100218
  Transmission Date: 20100710
  Serious: Yes (Death)
  Sender: FDA-Public Use
  Company Number: US-ELI_LILLY_AND_COMPANY-US201001006223

PATIENT
  Sex: Male

DRUGS (5)
  1. GEMZAR [Suspect]
     Dosage: 1700 MG, UNKNOWN
     Route: 042
     Dates: start: 20090202, end: 20090401
  2. CARBOPLATIN [Concomitant]
     Indication: NON-SMALL CELL LUNG CANCER METASTATIC
     Dosage: 476 MG, UNKNOWN
     Route: 042
     Dates: start: 20090202
  3. ZOMETA [Concomitant]
     Dosage: 3.5 MG, UNK
     Dates: start: 20090127
  4. ALOXI [Concomitant]
     Dosage: 0.25 MG, UNK
     Route: 040
     Dates: start: 20090202
  5. DEXAMETHASONE [Concomitant]
     Dates: start: 20090202

REACTIONS (1)
  - MALIGNANT NEOPLASM PROGRESSION [None]
